FAERS Safety Report 4322432-2 (Version None)
Quarter: 2004Q1

REPORT INFORMATION
  Report Type: 
  Country: None (occurrence: None)
  Receive Date: 20040319
  Receipt Date: 20040303
  Transmission Date: 20041129
  Serious: Yes (Hospitalization)
  Sender: FDA-Public Use
  Company Number: F02200400015

PATIENT
  Age: 67 Year
  Sex: Male

DRUGS (4)
  1. XATRAL - (ALFUZOSIN) [Suspect]
     Indication: BENIGN PROSTATIC HYPERPLASIA
     Dosage: 10 MG OD
     Route: 048
     Dates: start: 20001204, end: 20040202
  2. LIPHANTYL (FENOFIBRATE) [Concomitant]
  3. BETA-BLOCKER [Concomitant]
  4. CALCIUM-CHANNEL BLOCKER [Concomitant]

REACTIONS (3)
  - CALCULUS BLADDER [None]
  - DRUG INEFFECTIVE [None]
  - RENAL COLIC [None]
